FAERS Safety Report 17199190 (Version 4)
Quarter: 2020Q2

REPORT INFORMATION
  Report Type: Report from Study
  Country: None (occurrence: US)
  Receive Date: 20191225
  Receipt Date: 20200609
  Transmission Date: 20200713
  Serious: Yes (Hospitalization)
  Sender: FDA-Public Use
  Company Number: US-ABBVIE-19K-163-3206021-00

PATIENT
  Sex: Male
  Weight: 93.07 kg

DRUGS (3)
  1. HUMIRA [Suspect]
     Active Substance: ADALIMUMAB
     Dosage: DAY 15
     Route: 058
     Dates: start: 20191214, end: 20191214
  2. HUMIRA [Suspect]
     Active Substance: ADALIMUMAB
     Indication: CROHN^S DISEASE
     Route: 058
     Dates: start: 201912
  3. HUMIRA [Suspect]
     Active Substance: ADALIMUMAB
     Indication: CROHN^S DISEASE
     Dosage: DAY 1
     Route: 058
     Dates: start: 20191130, end: 20191130

REACTIONS (18)
  - Haemorrhoids [Not Recovered/Not Resolved]
  - Dysuria [Recovering/Resolving]
  - Feeling abnormal [Recovering/Resolving]
  - Weight decreased [Recovering/Resolving]
  - Malaise [Recovering/Resolving]
  - Urinary tract infection [Recovered/Resolved]
  - Insomnia [Unknown]
  - Abdominal pain upper [Recovering/Resolving]
  - Vomiting [Unknown]
  - Chills [Recovered/Resolved]
  - Constipation [Unknown]
  - Nasal obstruction [Unknown]
  - Decreased appetite [Unknown]
  - Depressed mood [Not Recovered/Not Resolved]
  - Nasal inflammation [Unknown]
  - Diarrhoea [Not Recovered/Not Resolved]
  - Faeces hard [Unknown]
  - Rectal haemorrhage [Not Recovered/Not Resolved]

NARRATIVE: CASE EVENT DATE: 2019
